FAERS Safety Report 8388418-6 (Version None)
Quarter: 2012Q2

REPORT INFORMATION
  Report Type: 
  Country: None (occurrence: None)
  Receive Date: 20120525
  Receipt Date: 20120511
  Transmission Date: 20120825
  Serious: No
  Sender: FDA-Public Use
  Company Number: US-ASTRAZENECA-2012SE22944

PATIENT
  Age: 50 Year
  Sex: Female
  Weight: 68.5 kg

DRUGS (7)
  1. NEXIUM [Suspect]
     Indication: GASTROOESOPHAGEAL REFLUX DISEASE
     Route: 048
     Dates: start: 20100903
  2. NEXIUM [Suspect]
     Route: 048
     Dates: start: 20100903
  3. IMITREX [Concomitant]
     Indication: MIGRAINE
     Route: 048
     Dates: start: 20110217
  4. NEXIUM [Suspect]
     Indication: HERNIA
     Route: 048
     Dates: start: 20100903
  5. LISINOPRIL [Suspect]
     Indication: HYPERTENSION
     Route: 048
     Dates: start: 20100719
  6. HYDROCHLOROTHIAZIDE [Suspect]
     Route: 065
  7. NORVASC [Concomitant]
     Indication: HYPERTENSION
     Route: 048
     Dates: start: 20100719

REACTIONS (7)
  - ALLERGIC COUGH [None]
  - OFF LABEL USE [None]
  - DYSPNOEA [None]
  - SINUS CONGESTION [None]
  - MALAISE [None]
  - RHINORRHOEA [None]
  - SINUSITIS [None]
